FAERS Safety Report 8330712 (Version 2)
Quarter: 2014Q2

REPORT INFORMATION
  Report Type: Spontaneous
  Country: US (occurrence: US)
  Receive Date: 20120111
  Receipt Date: 20140410
  Transmission Date: 20141212
  Serious: Yes (Hospitalization, Other)
  Sender: FDA-Public Use
  Company Number: US-ASTRAZENECA-2012SE00329

PATIENT
  Age: 79 Year
  Sex: Female
  Weight: 72.1 kg

DRUGS (12)
  1. CRESTOR [Suspect]
     Route: 048
  2. CRESTOR [Suspect]
     Route: 048
  3. PRILOSEC [Suspect]
     Route: 048
  4. BENAZEPRIL HYDROCHLOROTHIAZIDE [Concomitant]
     Dosage: 10 12.5 MG DAILY ONE TABLET IN THE MORNING AND HALF TABLET HALF 10 12.5 MG IN THE EVENING
     Route: 048
  5. BAYER ASPIRIN [Concomitant]
     Route: 048
  6. AMLODIPINE BESYLATE [Concomitant]
     Route: 048
  7. VITAMIN B12 [Concomitant]
     Dosage: 1 INJECTION, EVERY WEEK PRN
  8. FENOFIBRATE [Concomitant]
     Route: 048
  9. VITAMIN D3 [Concomitant]
     Dosage: 2000 UNITS DAILY
     Route: 048
  10. GABAPENTIN [Concomitant]
     Route: 048
  11. FOLIC [Concomitant]
     Route: 048
  12. CENTRUM SILVER [Concomitant]
     Route: 048

REACTIONS (11)
  - Cerebrovascular accident [Unknown]
  - Cerebrovascular accident [Not Recovered/Not Resolved]
  - Pernicious anaemia [Unknown]
  - Back disorder [Unknown]
  - Sciatica [Unknown]
  - Hiatus hernia [Unknown]
  - Gastrooesophageal reflux disease [Unknown]
  - Trigeminal neuralgia [Recovering/Resolving]
  - Osteoarthritis [Unknown]
  - Headache [Unknown]
  - Drug dose omission [Unknown]
